FAERS Safety Report 5524159-8 (Version None)
Quarter: 2007Q4

REPORT INFORMATION
  Report Type: 
  Country: None (occurrence: None)
  Receive Date: 20071121
  Receipt Date: 20071112
  Transmission Date: 20080405
  Serious: Yes (Death, Hospitalization)
  Sender: FDA-Public Use
  Company Number: JP-PFIZER INC-2007086879

PATIENT
  Sex: Female

DRUGS (17)
  1. IRINOTECAN HCL [Suspect]
     Indication: BREAST CANCER
     Dates: start: 20061214, end: 20061214
  2. IRINOTECAN HCL [Suspect]
     Dates: start: 20061221, end: 20061221
  3. CARBENIN [Suspect]
     Route: 042
     Dates: start: 20061225, end: 20061228
  4. TRASTUZUMAB [Concomitant]
     Route: 042
     Dates: start: 20061214, end: 20061214
  5. TRASTUZUMAB [Concomitant]
     Route: 042
     Dates: start: 20061221, end: 20061221
  6. MPA [Concomitant]
     Route: 048
     Dates: start: 20061208, end: 20061224
  7. CYANOCOBALAMIN [Concomitant]
     Route: 048
     Dates: start: 20061214, end: 20061229
  8. ESBERIVEN [Concomitant]
     Dosage: TEXT:6 DF
     Route: 048
     Dates: start: 20061214, end: 20061229
  9. NOVAMIN [Concomitant]
     Route: 048
     Dates: start: 20061214, end: 20061229
  10. FERROMIA [Concomitant]
     Route: 048
     Dates: start: 20061214, end: 20061229
  11. ZOFRAN [Concomitant]
     Route: 048
     Dates: start: 20061214, end: 20061218
  12. FENTANYL [Concomitant]
     Route: 062
     Dates: start: 20061214, end: 20070104
  13. EURODIN [Concomitant]
     Route: 048
     Dates: start: 20061215, end: 20061221
  14. HANGE-SHASHIN-TO [Concomitant]
     Route: 048
     Dates: start: 20061213, end: 20061215
  15. HANGE-SHASHIN-TO [Concomitant]
     Dates: start: 20061220, end: 20061222
  16. CRAVIT [Concomitant]
     Route: 048
     Dates: start: 20061212, end: 20061214
  17. LETROZOLE [Concomitant]
     Dosage: DAILY DOSE:2.5MG
     Dates: start: 20060801, end: 20061207

REACTIONS (5)
  - DISSEMINATED INTRAVASCULAR COAGULATION [None]
  - FEBRILE NEUTROPENIA [None]
  - PNEUMONIA [None]
  - PSEUDOMEMBRANOUS COLITIS [None]
  - SEPSIS [None]
